FAERS Safety Report 20101564 (Version 1)
Quarter: 2021Q4

REPORT INFORMATION
  Report Type: Spontaneous
  Country: US (occurrence: None)
  Receive Date: 20211122
  Receipt Date: 20211122
  Transmission Date: 20220303
  Serious: Yes (Disabling, Other)
  Sender: FDA-Public Use
  Company Number: None

PATIENT
  Age: 62 Year
  Sex: Female
  Weight: 110.25 kg

DRUGS (27)
  1. OMEGA-3-ACID ETHYL ESTERS [Suspect]
     Active Substance: OMEGA-3-ACID ETHYL ESTERS
     Indication: Blood triglycerides increased
     Dosage: OTHER QUANTITY : 120 CAPSULE(S);?FREQUENCY : TWICE A DAY;?
     Route: 048
     Dates: start: 20190901
  2. FLONASE [Concomitant]
  3. ALLEGRA [Concomitant]
     Active Substance: FEXOFENADINE HYDROCHLORIDE
  4. ZYRTEC [Concomitant]
  5. XYZAL [Concomitant]
     Active Substance: LEVOCETIRIZINE DIHYDROCHLORIDE
  6. AZELASTINE [Concomitant]
     Active Substance: AZELASTINE
  7. SINGULAIR [Concomitant]
     Active Substance: MONTELUKAST SODIUM
  8. SOOLANTRA [Concomitant]
  9. ROSACEA [Concomitant]
     Active Substance: SULFUR
  10. ZOLOFT [Concomitant]
     Active Substance: SERTRALINE HYDROCHLORIDE
  11. CARVEDILOL [Concomitant]
     Active Substance: CARVEDILOL
  12. BLOOD PRESSURE [Concomitant]
  13. EXETIMIBE [Concomitant]
  14. LISINAPRIL [Concomitant]
  15. OMEGA-3 [Concomitant]
  16. ETHYL ESTERS [Concomitant]
  17. TRIGLYCERIDES [Concomitant]
  18. FOLIC ACID [Concomitant]
     Active Substance: FOLIC ACID
  19. LEVOTHYROXINE [Suspect]
     Active Substance: LEVOTHYROXINE
  20. CYTOMEL [Concomitant]
  21. SYNJARDY [Concomitant]
     Active Substance: EMPAGLIFLOZIN\METFORMIN HYDROCHLORIDE
  22. OZEMPIC [Concomitant]
  23. VITAMIN C [Concomitant]
     Active Substance: ASCORBIC ACID
  24. VITAMIN D CALCIUM MAGNESIUM + ZINK B-12 [Concomitant]
  25. CINNAMON [Concomitant]
     Active Substance: CINNAMON
  26. HERBALS\TURMERIC [Concomitant]
     Active Substance: HERBALS\TURMERIC
  27. HERBALS [Concomitant]
     Active Substance: HERBALS

REACTIONS (4)
  - Tremor [None]
  - Muscular weakness [None]
  - Magnetic resonance imaging head abnormal [None]
  - Product quality issue [None]

NARRATIVE: CASE EVENT DATE: 20201010
